FAERS Safety Report 7818447-X (Version None)
Quarter: 2011Q4

REPORT INFORMATION
  Report Type: 
  Country: None (occurrence: None)
  Receive Date: 20111017
  Receipt Date: 20111013
  Transmission Date: 20120403
  Serious: Yes (Other)
  Sender: FDA-Public Use
  Company Number: JP-ABBOTT-09P-087-0602452-00

PATIENT
  Age: 80 Year
  Sex: Female
  Weight: 55 kg

DRUGS (6)
  1. OXYGEN [Concomitant]
     Indication: MAINTENANCE OF ANAESTHESIA
     Route: 055
  2. SEVOFLURANE [Suspect]
     Indication: MAINTENANCE OF ANAESTHESIA
     Route: 055
  3. ROCURONIUM BROMIDE [Suspect]
     Indication: INDUCTION OF ANAESTHESIA
  4. REMIFENTANIL [Suspect]
     Indication: INDUCTION AND MAINTENANCE OF ANAESTHESIA
     Dosage: 0.5 MUG/SUP-1/MIN/SUP-1/
  5. ATROPINE [Suspect]
     Indication: PRODUCT USED FOR UNKNOWN INDICATION
     Route: 042
  6. THIAMYLAL [Suspect]
     Indication: INDUCTION OF ANAESTHESIA

REACTIONS (2)
  - VENTRICULAR ARRHYTHMIA [None]
  - TORSADE DE POINTES [None]
